FAERS Safety Report 9528283 (Version 1)
Quarter: 2013Q3

REPORT INFORMATION
  Report Type: Spontaneous
  Country: US (occurrence: US)
  Receive Date: 20130917
  Receipt Date: 20130917
  Transmission Date: 20140515
  Serious: Yes (Hospitalization)
  Sender: FDA-Public Use
  Company Number: US-BAYER-2013-110353

PATIENT
  Age: 44 Year
  Sex: Female
  Weight: 52.61 kg

DRUGS (2)
  1. YASMIN [Suspect]
  2. VICODIN [Concomitant]
     Indication: PAIN
     Dosage: 1-2 Q 4 HOURS AS NEEDED.

REACTIONS (2)
  - Pulmonary embolism [None]
  - Deep vein thrombosis [Recovered/Resolved]
